FAERS Safety Report 9249391 (Version 3)
Quarter: 2013Q3

REPORT INFORMATION
  Report Type: Report from Study
  Country: CA (occurrence: CA)
  Receive Date: 20130423
  Receipt Date: 20130925
  Transmission Date: 20140515
  Serious: Yes (Other)
  Sender: FDA-Public Use
  Company Number: CA-BRISTOL-MYERS SQUIBB COMPANY-17417304

PATIENT
  Age: 40 Year
  Sex: Female

DRUGS (7)
  1. ORENCIA [Suspect]
     Indication: RHEUMATOID ARTHRITIS
     Dosage: 1DF:750-UNITS NOS?FREQ: 4WKS?3A77129-EXP-JUL15
     Dates: start: 20130206, end: 20130411
  2. METHAZOLAMIDE [Concomitant]
  3. CALCIUM [Concomitant]
  4. MULTIVITAMIN [Concomitant]
  5. BETAGAN [Concomitant]
  6. MULTIVITAMIN [Concomitant]
  7. PROBIOTICA [Concomitant]

REACTIONS (14)
  - Rib fracture [Unknown]
  - Stress fracture [Not Recovered/Not Resolved]
  - Influenza [Recovering/Resolving]
  - Procedural headache [Recovering/Resolving]
  - Rheumatoid arthritis [Not Recovered/Not Resolved]
  - Diarrhoea [Recovered/Resolved]
  - Fatigue [Not Recovered/Not Resolved]
  - Pain [Not Recovered/Not Resolved]
  - Feeling abnormal [Not Recovered/Not Resolved]
  - Dizziness [Not Recovered/Not Resolved]
  - Bronchitis [Recovered/Resolved]
  - Hypotension [Recovered/Resolved]
  - Drug ineffective [Unknown]
  - Somnolence [Unknown]
